FAERS Safety Report 24804558 (Version 1)
Quarter: 2025Q1

REPORT INFORMATION
  Report Type: Spontaneous
  Country: US (occurrence: US)
  Receive Date: 20250103
  Receipt Date: 20250103
  Transmission Date: 20250409
  Serious: Yes (Hospitalization, Other)
  Sender: RANBAXY
  Company Number: US-SUN PHARMACEUTICAL INDUSTRIES LTD-2024R1-487591

PATIENT
  Age: 59 Year
  Sex: Female

DRUGS (3)
  1. PROPYLTHIOURACIL [Suspect]
     Active Substance: PROPYLTHIOURACIL
     Indication: Thyrotoxic crisis
     Route: 065
  2. METOPROLOL [Suspect]
     Active Substance: METOPROLOL
     Indication: Thyrotoxic crisis
     Route: 065
  3. FUROSEMIDE [Suspect]
     Active Substance: FUROSEMIDE
     Indication: Thyrotoxic crisis
     Route: 065

REACTIONS (2)
  - Thyrotoxic cardiomyopathy [Unknown]
  - Drug-induced liver injury [Unknown]
